FAERS Safety Report 9873583 (Version 1)
Quarter: 2014Q1

REPORT INFORMATION
  Report Type: Other
  Country: US (occurrence: US)
  Receive Date: 20140206
  Receipt Date: 20140206
  Transmission Date: 20141002
  Serious: No
  Sender: FDA-Public Use
  Company Number: US-ACORDA-ACO_34818_2013

PATIENT
  Sex: Male
  Weight: 69.84 kg

DRUGS (2)
  1. AMPYRA [Suspect]
     Indication: MULTIPLE SCLEROSIS
     Dosage: 10 MG, QD
     Route: 048
  2. AMPYRA [Suspect]
     Dosage: 10 MG, BID
     Route: 048

REACTIONS (5)
  - Memory impairment [Unknown]
  - Amnesia [Unknown]
  - Movement disorder [None]
  - Confusional state [Unknown]
  - Drug ineffective [Unknown]
